FAERS Safety Report 5953896-6 (Version None)
Quarter: 2008Q4

REPORT INFORMATION
  Report Type: 
  Country: None (occurrence: None)
  Receive Date: 20081114
  Receipt Date: 20081105
  Transmission Date: 20090506
  Serious: Yes (Hospitalization)
  Sender: FDA-Public Use
  Company Number: JP-B.I. PHARMACEUTICALS,INC./RIDGEFIELD-2008-DE-06653GD

PATIENT
  Age: 55 Year
  Sex: Female

DRUGS (4)
  1. PRAMIPEXOLE DIHYDROCHLORIDE [Suspect]
     Indication: PARKINSON'S DISEASE
  2. AMANTADINE HCL [Suspect]
     Indication: PARKINSON'S DISEASE
  3. L-DOPA [Suspect]
     Indication: PARKINSON'S DISEASE
  4. TRIHEXYPHENIDYL [Suspect]
     Indication: PARKINSON'S DISEASE

REACTIONS (2)
  - NEUROLEPTIC MALIGNANT SYNDROME [None]
  - STRESS CARDIOMYOPATHY [None]
